FAERS Safety Report 19120397 (Version 1)
Quarter: 2021Q2

REPORT INFORMATION
  Report Type: Spontaneous
  Country: IL (occurrence: IL)
  Receive Date: 20210412
  Receipt Date: 20210412
  Transmission Date: 20210717
  Serious: Yes (Other)
  Sender: FDA-Public Use
  Company Number: IL-ELI_LILLY_AND_COMPANY-IL202104002875

PATIENT
  Sex: Female

DRUGS (3)
  1. EMGALITY [Suspect]
     Active Substance: GALCANEZUMAB-GNLM
     Indication: MIGRAINE
     Dosage: 120 MG, MONTHLY (1/M)
     Route: 058
     Dates: start: 202102
  2. RIZALT [Concomitant]
     Active Substance: RIZATRIPTAN BENZOATE
     Dosage: 2?3 DOSAGE FORM, MONTHLY (1/M)
  3. RIZALT [Concomitant]
     Active Substance: RIZATRIPTAN BENZOATE
     Indication: MIGRAINE
     Dosage: 20 DOSAGE FORM, MONTHLY (1/M)

REACTIONS (1)
  - Blood pressure increased [Unknown]
